FAERS Safety Report 10211242 (Version 1)
Quarter: 2014Q2

REPORT INFORMATION
  Report Type: Spontaneous
  Country: CA (occurrence: CA)
  Receive Date: 20140602
  Receipt Date: 20140602
  Transmission Date: 20141212
  Serious: Yes (Life-Threatening)
  Sender: FDA-Public Use
  Company Number: CA-GLAXOSMITHKLINE-A1064618A

PATIENT
  Sex: Male
  Weight: 82.3 kg

DRUGS (10)
  1. ADVAIR [Suspect]
     Indication: CHRONIC OBSTRUCTIVE PULMONARY DISEASE
     Dosage: 1PUFF TWICE PER DAY
     Route: 065
     Dates: start: 20140205
  2. FLOVENT [Suspect]
     Indication: PRODUCT USED FOR UNKNOWN INDICATION
     Route: 065
  3. ATROVENT [Suspect]
     Indication: PRODUCT USED FOR UNKNOWN INDICATION
     Route: 065
  4. SPIRIVA [Suspect]
     Indication: CHRONIC OBSTRUCTIVE PULMONARY DISEASE
     Route: 065
  5. VENTOLIN [Concomitant]
  6. FLOMAX [Concomitant]
  7. FELODIPINE [Concomitant]
  8. AVODART [Concomitant]
  9. TELMISARTAN [Concomitant]
  10. FUROSEMIDE [Concomitant]

REACTIONS (6)
  - Chronic obstructive pulmonary disease [Unknown]
  - Localised oedema [Unknown]
  - Respiratory tract oedema [Recovered/Resolved]
  - Face oedema [Recovered/Resolved]
  - Hypersensitivity [Recovered/Resolved]
  - Dyspnoea [Recovered/Resolved]
